FAERS Safety Report 11368759 (Version 1)
Quarter: 2015Q3

REPORT INFORMATION
  Report Type: Spontaneous
  Country: CA (occurrence: CA)
  Receive Date: 20150812
  Receipt Date: 20150812
  Transmission Date: 20151125
  Serious: Yes (Hospitalization, Other)
  Sender: FDA-Public Use
  Company Number: CA-AMGEN-CANSP2014104837

PATIENT
  Age: 57 Year
  Sex: Male

DRUGS (13)
  1. ORENCIA [Concomitant]
     Active Substance: ABATACEPT
     Dosage: UNK
     Dates: start: 200609
  2. SULFASALAZINE. [Concomitant]
     Active Substance: SULFASALAZINE
     Dosage: UNK
  3. HYDROXYCHLOROQUINE [Concomitant]
     Active Substance: HYDROXYCHLOROQUINE
     Dosage: UNK
  4. PLAQUENIL [Concomitant]
     Active Substance: HYDROXYCHLOROQUINE SULFATE
     Dosage: UNK
  5. ENBREL [Suspect]
     Active Substance: ETANERCEPT
     Indication: RHEUMATOID ARTHRITIS
     Dosage: UNK
     Route: 065
  6. ACTEMRA [Concomitant]
     Active Substance: TOCILIZUMAB
     Dosage: UNK
     Dates: start: 201202
  7. KINERET [Concomitant]
     Active Substance: ANAKINRA
     Dosage: UNK
     Dates: start: 2002
  8. GOLD [Concomitant]
     Active Substance: GOLD
     Dosage: UNK
  9. REMICADE [Concomitant]
     Active Substance: INFLIXIMAB
     Dosage: UNK
  10. HUMIRA [Concomitant]
     Active Substance: ADALIMUMAB
     Dosage: UNK
  11. METHOTREXATE [Concomitant]
     Active Substance: METHOTREXATE
     Dosage: UNK
  12. RITUXIMAB [Concomitant]
     Active Substance: RITUXIMAB
     Dosage: UNK
  13. LEFLUNOMIDE. [Concomitant]
     Active Substance: LEFLUNOMIDE
     Dosage: UNK

REACTIONS (14)
  - Myocardial infarction [Unknown]
  - Terminal state [Unknown]
  - Pulmonary embolism [Unknown]
  - Joint arthroplasty [Unknown]
  - C-reactive protein abnormal [Unknown]
  - Knee arthroplasty [Unknown]
  - Pain [Unknown]
  - Pulmonary thrombosis [Unknown]
  - Drug ineffective [Unknown]
  - Stent placement [Unknown]
  - Thrombosis [Unknown]
  - Joint swelling [Unknown]
  - Renal failure [Unknown]
  - Diverticulitis [Unknown]

NARRATIVE: CASE EVENT DATE: 20130207
